FAERS Safety Report 4396627-6 (Version None)
Quarter: 2004Q3

REPORT INFORMATION
  Report Type: 
  Country: None (occurrence: None)
  Receive Date: 20040713
  Receipt Date: 20040713
  Transmission Date: 20050211
  Serious: Yes (Hospitalization)
  Sender: FDA-Public Use
  Company Number: None

PATIENT
  Age: 58 Year
  Sex: Male
  Weight: 147 kg

DRUGS (2)
  1. DAPTOMYCIN 500 MG CUBIST [Suspect]
     Indication: DRUG INEFFECTIVE
     Dosage: 500 MG Q24H INTRAVENOUS
     Route: 042
     Dates: start: 20040626, end: 20040705
  2. DAPTOMYCIN 500 MG CUBIST [Suspect]
     Indication: STAPHYLOCOCCAL BACTERAEMIA
     Dosage: 500 MG Q24H INTRAVENOUS
     Route: 042
     Dates: start: 20040626, end: 20040705

REACTIONS (1)
  - INTERNATIONAL NORMALISED RATIO INCREASED [None]
